FAERS Safety Report 6383798-5 (Version None)
Quarter: 2009Q4

REPORT INFORMATION
  Report Type: 
  Country: None (occurrence: None)
  Receive Date: 20091001
  Receipt Date: 20090922
  Transmission Date: 20100525
  Serious: Yes (Other)
  Sender: FDA-Public Use
  Company Number: CH-B.I. PHARMACEUTICALS,INC./RIDGEFIELD-2009-SI-00040SI

PATIENT
  Age: 66 Year
  Sex: Female

DRUGS (3)
  1. PRADIF [Suspect]
     Indication: RESIDUAL URINE
     Dosage: 400 MCG
     Route: 048
     Dates: start: 20090601, end: 20090722
  2. DITROPAN [Suspect]
     Indication: HYPERTONIC BLADDER
     Dosage: 10 MG
     Route: 048
     Dates: end: 20090722
  3. DITROPAN [Suspect]
     Dosage: 10 MG
     Route: 048
     Dates: start: 20090729

REACTIONS (4)
  - ATRIAL FLUTTER [None]
  - DRUG INTERACTION [None]
  - LEFT VENTRICULAR FAILURE [None]
  - THERAPEUTIC RESPONSE DECREASED [None]
